FAERS Safety Report 11092803 (Version 1)
Quarter: 2015Q2

REPORT INFORMATION
  Report Type: Spontaneous
  Country: US (occurrence: US)
  Receive Date: 20150506
  Receipt Date: 20150506
  Transmission Date: 20150821
  Serious: Yes (Hospitalization)
  Sender: FDA-Public Use
  Company Number: US-JNJFOC-20150404242

PATIENT
  Age: 63 Year
  Sex: Male
  Weight: 98 kg

DRUGS (4)
  1. DIVALPROEX [Concomitant]
     Active Substance: DIVALPROEX SODIUM
     Indication: PRODUCT USED FOR UNKNOWN INDICATION
     Dosage: MEDICATION WAS STARTED FROM 12-SEP-2014 AND ONGOING. ON 01-APR-2015.
     Route: 065
     Dates: start: 20140912
  2. XANAX [Concomitant]
     Active Substance: ALPRAZOLAM
     Indication: PRODUCT USED FOR UNKNOWN INDICATION
     Dosage: MEDICATION WAS STARTED FROM 12-SEP-2014 AND ONGOING. ON 01-APR-2015.
     Route: 065
     Dates: start: 20140912
  3. NICOTROL [Suspect]
     Active Substance: NICOTINE
     Indication: SMOKING CESSATION THERAPY
     Route: 065
     Dates: start: 201503, end: 2015
  4. NICOTROL [Suspect]
     Active Substance: NICOTINE
     Indication: SMOKING CESSATION THERAPY
     Route: 065
     Dates: start: 20150401, end: 20150402

REACTIONS (13)
  - Headache [Unknown]
  - Constipation [Recovered/Resolved]
  - Dizziness [Unknown]
  - Feeling abnormal [Unknown]
  - Agitation [Unknown]
  - Disturbance in attention [Unknown]
  - Somnolence [Unknown]
  - Weight decreased [Unknown]
  - Anxiety [Unknown]
  - Skin discolouration [Unknown]
  - Sleep disorder [Unknown]
  - Tremor [Unknown]
  - Increased appetite [Unknown]

NARRATIVE: CASE EVENT DATE: 201503
